FAERS Safety Report 7918376-7 (Version None)
Quarter: 2011Q4

REPORT INFORMATION
  Report Type: 
  Country: None (occurrence: None)
  Receive Date: 20111116
  Receipt Date: 20111107
  Transmission Date: 20120403
  Serious: Yes (Hospitalization, Other)
  Sender: FDA-Public Use
  Company Number: US-ELI_LILLY_AND_COMPANY-US201111003113

PATIENT
  Age: 71 Year
  Sex: Male

DRUGS (6)
  1. ASPIRIN [Concomitant]
     Dosage: UNK, UNKNOWN
     Route: 065
  2. EFFIENT [Suspect]
     Dosage: 81 MG, UNKNOWN
     Route: 065
  3. SIMVASTATIN [Concomitant]
     Dosage: UNK, UNKNOWN
     Route: 065
  4. EFFIENT [Suspect]
     Indication: STENT PLACEMENT
     Dosage: 60 MG, LOADING DOSE
     Route: 065
  5. EFFIENT [Suspect]
     Dosage: 10 MG, QD
     Route: 065
  6. LISINOPRIL [Concomitant]
     Dosage: UNK, UNKNOWN
     Route: 065

REACTIONS (1)
  - THROMBOSIS IN DEVICE [None]
